FAERS Safety Report 9068329 (Version 1)
Quarter: 2013Q1

REPORT INFORMATION
  Report Type: Spontaneous
  Country: US (occurrence: None)
  Receive Date: 20130212
  Receipt Date: 20130212
  Transmission Date: 20140127
  Serious: No
  Sender: FDA-Public Use
  Company Number: None

PATIENT
  Sex: Male
  Weight: 64.41 kg

DRUGS (1)
  1. METHADONE [Suspect]
     Indication: PAIN
     Dosage: 30 MG  TID  PO
     Route: 048
     Dates: start: 20120807, end: 20121113

REACTIONS (7)
  - Drug tolerance [None]
  - Tremor [None]
  - Dyskinesia [None]
  - Dysphemia [None]
  - Impaired driving ability [None]
  - Memory impairment [None]
  - Depressed level of consciousness [None]
